FAERS Safety Report 5809437-7 (Version None)
Quarter: 2008Q3

REPORT INFORMATION
  Report Type: 
  Country: None (occurrence: None)
  Receive Date: 20080709
  Receipt Date: 20080627
  Transmission Date: 20090109
  Serious: Yes (Life-Threatening)
  Sender: FDA-Public Use
  Company Number: 001636

PATIENT
  Sex: Female

DRUGS (6)
  1. BUSULFEX [Suspect]
     Indication: STEM CELL TRANSPLANT
     Dosage: 3.2 ML, INTRAVENOUS
     Route: 042
     Dates: start: 20080516, end: 20080518
  2. FILGRASTIM (FILGRASTIM [Suspect]
     Dosage: 450 UG
     Dates: start: 20080525, end: 20080610
  3. TACROLIMUS [Concomitant]
  4. METHOTREXATE [Concomitant]
  5. MELPHALAN (MELPHALAN) [Concomitant]
  6. THIOTEPA [Concomitant]

REACTIONS (3)
  - BONE MARROW TRANSPLANT REJECTION [None]
  - CAPILLARY LEAK SYNDROME [None]
  - WHITE BLOOD CELL COUNT DECREASED [None]
